FAERS Safety Report 16736391 (Version 2)
Quarter: 2020Q3

REPORT INFORMATION
  Report Type: Spontaneous
  Country: US (occurrence: US)
  Receive Date: 20190823
  Receipt Date: 20200826
  Transmission Date: 20201102
  Serious: No
  Sender: FDA-Public Use
  Company Number: US-SA-2019SA236039

PATIENT

DRUGS (5)
  1. TRIAMCINOLONE ACETONIDE. [Concomitant]
     Active Substance: TRIAMCINOLONE ACETONIDE
  2. ASPIRIN EC [Concomitant]
     Active Substance: ASPIRIN
  3. ALLEGRA [Concomitant]
     Active Substance: FEXOFENADINE HYDROCHLORIDE
  4. DUPIXENT [Suspect]
     Active Substance: DUPILUMAB
     Indication: DERMATITIS ATOPIC
     Dosage: 300 MG, QOW
     Route: 058
     Dates: start: 201811
  5. CLOBETASOL PROPIONATE. [Concomitant]
     Active Substance: CLOBETASOL PROPIONATE

REACTIONS (5)
  - Pyrexia [Unknown]
  - Injection site mass [Unknown]
  - Headache [Unknown]
  - Chest discomfort [Recovered/Resolved]
  - Suspected COVID-19 [Unknown]

NARRATIVE: CASE EVENT DATE: 2019
